FAERS Safety Report 4446501-1 (Version None)
Quarter: 2004Q3

REPORT INFORMATION
  Report Type: 
  Country: None (occurrence: None)
  Receive Date: 20040902
  Receipt Date: 20040818
  Transmission Date: 20050211
  Serious: Yes (Hospitalization)
  Sender: FDA-Public Use
  Company Number: 203044

PATIENT
  Age: 52 Year
  Sex: Male

DRUGS (1)
  1. AVONEX [Suspect]
     Indication: MULTIPLE SCLEROSIS
     Dosage: 30 MCG IM QW
     Route: 030
     Dates: start: 20010101, end: 20040424

REACTIONS (5)
  - CARDIAC DISORDER [None]
  - DEPRESSION [None]
  - HYPERTENSION [None]
  - INFLUENZA LIKE ILLNESS [None]
  - TACHYCARDIA [None]
